FAERS Safety Report 11603915 (Version 4)
Quarter: 2015Q4

REPORT INFORMATION
  Report Type: Report from Study
  Country: DE (occurrence: DE)
  Receive Date: 20151007
  Receipt Date: 20151215
  Transmission Date: 20160304
  Serious: Yes (Hospitalization)
  Sender: FDA-Public Use
  Company Number: DE-BEH-2015054481

PATIENT
  Age: 74 Year
  Sex: Female
  Weight: 67 kg

DRUGS (16)
  1. PANTOZOL [Concomitant]
     Active Substance: PANTOPRAZOLE SODIUM
  2. PROTAPHANE [Concomitant]
     Active Substance: INSULIN HUMAN
  3. HUMALOG [Concomitant]
     Active Substance: INSULIN LISPRO
  4. INSPRA [Concomitant]
     Active Substance: EPLERENONE
  5. PRIVIGEN [Suspect]
     Active Substance: HUMAN IMMUNOGLOBULIN G
     Indication: CHRONIC LYMPHOCYTIC LEUKAEMIA
     Dosage: INFUSION RATE 0.8 - 6 ML/MIN
     Route: 042
     Dates: start: 20150526, end: 20150526
  6. TOREM [Concomitant]
     Active Substance: TORSEMIDE
  7. DIGITOXIN [Concomitant]
     Active Substance: DIGITOXIN
  8. ALL OTHER THERAPEUTIC PRODUCTS [Concomitant]
     Active Substance: UNSPECIFIED INGREDIENT
  9. PRIVIGEN [Suspect]
     Active Substance: HUMAN IMMUNOGLOBULIN G
     Indication: SECONDARY IMMUNODEFICIENCY
     Dosage: INFUSION RATE 0.8 - 6 ML/MIN
     Route: 042
     Dates: start: 20150427, end: 20150427
  10. RAMIPRIL. [Concomitant]
     Active Substance: RAMIPRIL
  11. PRIVIGEN [Suspect]
     Active Substance: HUMAN IMMUNOGLOBULIN G
     Indication: INFECTION
     Dosage: INFUSION RATE 0.8 - 6 ML/MIN
     Route: 042
     Dates: start: 20150330, end: 20150330
  12. ANTINEOPLASTIC AND IMMUNOMODULATING AGENTS [Suspect]
     Active Substance: UNSPECIFIED INGREDIENT
     Indication: CHRONIC LYMPHOCYTIC LEUKAEMIA
     Route: 048
     Dates: start: 20141124
  13. PRIVIGEN [Suspect]
     Active Substance: HUMAN IMMUNOGLOBULIN G
     Dosage: INFUSION RATE 0.8 - 6 ML/MIN; SOLUTION STRENGTH 10%, VIA PORT
     Route: 042
     Dates: start: 20150622, end: 20150622
  14. ALL OTHER THERAPEUTIC PRODUCTS [Concomitant]
     Active Substance: UNSPECIFIED INGREDIENT
     Indication: ATRIAL FIBRILLATION
     Dosage: START DATE ??-FEB-2015
     Route: 048
  15. METFORMIN [Concomitant]
     Active Substance: METFORMIN HYDROCHLORIDE
  16. LYRICA [Concomitant]
     Active Substance: PREGABALIN

REACTIONS (4)
  - Productive cough [Recovered/Resolved]
  - Granulomatous dermatitis [Recovered/Resolved]
  - Pyoderma gangrenosum [Recovered/Resolved]
  - Subcutaneous abscess [Recovered/Resolved]

NARRATIVE: CASE EVENT DATE: 201502
